FAERS Safety Report 7681040-6 (Version None)
Quarter: 2011Q3

REPORT INFORMATION
  Report Type: 
  Country: None (occurrence: None)
  Receive Date: 20110809
  Receipt Date: 20110804
  Transmission Date: 20111222
  Serious: Yes (Death, Hospitalization)
  Sender: FDA-Public Use
  Company Number: ACO_25791_2011

PATIENT
  Age: 52 Year
  Sex: Female
  Weight: 59 kg

DRUGS (10)
  1. ABILIFY [Concomitant]
  2. FISH OIL (FISH OIL) [Concomitant]
  3. ZOLOFT [Concomitant]
  4. FLAXSEED OIL (LINUM USITATISSIMUM SEED OIL) [Concomitant]
  5. BACLOFEN [Concomitant]
  6. NITROFURANTOIN [Concomitant]
  7. AMPYRA [Suspect]
     Indication: GAIT DISTURBANCE
     Dosage: 10 MG, ONCE A DAY, ORAL
     Route: 048
     Dates: start: 20100501, end: 20100101
  8. GEMFIBROZIL [Concomitant]
  9. AVONEX [Concomitant]
  10. OXYBUTYNIN [Concomitant]

REACTIONS (4)
  - INSOMNIA [None]
  - SEPTIC SHOCK [None]
  - INAPPROPRIATE SCHEDULE OF DRUG ADMINISTRATION [None]
  - DISSEMINATED INTRAVASCULAR COAGULATION [None]
